FAERS Safety Report 4420857-8 (Version None)
Quarter: 2004Q3

REPORT INFORMATION
  Report Type: 
  Country: None (occurrence: None)
  Receive Date: 20040809
  Receipt Date: 20040804
  Transmission Date: 20050211
  Serious: Yes (Death, Life-Threatening)
  Sender: FDA-Public Use
  Company Number: 200412940FR

PATIENT
  Age: 85 Year
  Weight: 100 kg

DRUGS (12)
  1. LOVENOX [Suspect]
     Route: 042
     Dates: start: 20040128, end: 20040301
  2. PIRACETAM [Concomitant]
     Route: 048
  3. FUROSEMIDE [Concomitant]
     Route: 048
  4. FOZITEC [Concomitant]
     Route: 048
     Dates: end: 20040205
  5. AMIODARONE MERCK [Concomitant]
     Route: 048
  6. CALCIPARINE 10 000 IU/0.4 ML [Concomitant]
     Route: 058
     Dates: end: 20040127
  7. NUBAIN [Concomitant]
     Dates: start: 20040203
  8. PRIMPERAN INJ [Concomitant]
     Dates: start: 20040203
  9. VITAMINE B1 [Concomitant]
     Dates: start: 20040203
  10. PERFALGAN 1G [Concomitant]
     Route: 042
     Dates: start: 20040203
  11. PROFENID [Concomitant]
     Dates: start: 20040203
  12. CEFAZOLINE 1 G [Concomitant]
     Dates: start: 20040203

REACTIONS (1)
  - CEREBROVASCULAR ACCIDENT [None]
